FAERS Safety Report 9209193 (Version 3)
Quarter: 2013Q2

REPORT INFORMATION
  Report Type: Report from Study
  Country: GB (occurrence: GB)
  Receive Date: 20130404
  Receipt Date: 20130612
  Transmission Date: 20140414
  Serious: No
  Sender: FDA-Public Use
  Company Number: GB-CELGENEUS-167-C5013-13033549

PATIENT
  Age: 68 Year
  Sex: Male
  Weight: 82.3 kg

DRUGS (3)
  1. CC-5013 [Suspect]
     Indication: DIFFUSE LARGE B-CELL LYMPHOMA
     Dosage: 10 MILLIGRAM
     Route: 048
     Dates: start: 20110613
  2. CC-5013 [Suspect]
     Dosage: 5 MILLIGRAM
     Route: 048
     Dates: start: 20130322
  3. CLOPIDOGREL [Concomitant]
     Indication: THROMBOSIS PROPHYLAXIS
     Dosage: 75 MILLIGRAM
     Route: 048
     Dates: start: 20110926

REACTIONS (1)
  - Actinic keratosis [Recovered/Resolved with Sequelae]
